FAERS Safety Report 16898827 (Version 1)
Quarter: 2019Q4

REPORT INFORMATION
  Report Type: Spontaneous
  Country: US (occurrence: US)
  Receive Date: 20191009
  Receipt Date: 20191009
  Transmission Date: 20200122
  Serious: No
  Sender: FDA-Public Use
  Company Number: US-BEH-2019107746

PATIENT
  Age: 59 Year
  Sex: Female

DRUGS (20)
  1. HIZENTRA [Suspect]
     Active Substance: HUMAN IMMUNOGLOBULIN G
     Indication: HUMORAL IMMUNE DEFECT
     Dosage: 12 GRAM, QW
     Route: 058
     Dates: start: 20180206
  2. CYCLOBENZAPRINE. [Concomitant]
     Active Substance: CYCLOBENZAPRINE
  3. DRONABINOL. [Concomitant]
     Active Substance: DRONABINOL
  4. ESTRADIOL. [Concomitant]
     Active Substance: ESTRADIOL
  5. LEVOTHYROXIN [Concomitant]
     Active Substance: LEVOTHYROXINE
  6. SUCRALFATE. [Concomitant]
     Active Substance: SUCRALFATE
  7. VALACYCLOVIR [Concomitant]
     Active Substance: VALACYCLOVIR HYDROCHLORIDE
  8. ALPRAZOLAM. [Concomitant]
     Active Substance: ALPRAZOLAM
  9. LINZESS [Concomitant]
     Active Substance: LINACLOTIDE
  10. PAROXETINE. [Concomitant]
     Active Substance: PAROXETINE
  11. HIZENTRA [Suspect]
     Active Substance: HUMAN IMMUNOGLOBULIN G
     Dosage: 10 GRAM/50 ML
     Route: 058
  12. CYANOCOBALAMINE [Concomitant]
     Active Substance: CYANOCOBALAMIN
  13. FLUCONAZOLE. [Concomitant]
     Active Substance: FLUCONAZOLE
  14. PANTOPRAZOLE [Concomitant]
     Active Substance: PANTOPRAZOLE
  15. TRAMADOL. [Concomitant]
     Active Substance: TRAMADOL
  16. HIZENTRA [Suspect]
     Active Substance: HUMAN IMMUNOGLOBULIN G
     Dosage: 2 GRAM/10 ML
     Route: 058
  17. HYDROMORPHONE [Concomitant]
     Active Substance: HYDROMORPHONE
  18. OLMESARTAN MEDOXOMIL. [Concomitant]
     Active Substance: OLMESARTAN MEDOXOMIL
  19. ZOLPIDEM [Concomitant]
     Active Substance: ZOLPIDEM TARTRATE
  20. HYOSCYAMINE. [Concomitant]
     Active Substance: HYOSCYAMINE

REACTIONS (2)
  - Nausea [Not Recovered/Not Resolved]
  - Headache [Not Recovered/Not Resolved]

NARRATIVE: CASE EVENT DATE: 20190928
